FAERS Safety Report 6757087-0 (Version None)
Quarter: 2010Q2

REPORT INFORMATION
  Report Type: 
  Country: None (occurrence: None)
  Receive Date: 20100604
  Receipt Date: 20100601
  Transmission Date: 20101027
  Serious: Yes (Hospitalization, Other)
  Sender: FDA-Public Use
  Company Number: CA-MERCK-1006USA00234

PATIENT
  Age: 38 Year
  Sex: Male
  Weight: 148 kg

DRUGS (8)
  1. JANUVIA [Suspect]
     Route: 048
  2. ACETAMINOPHEN [Concomitant]
     Route: 065
  3. ALBUTEROL [Concomitant]
     Route: 055
  4. ASPIRIN [Concomitant]
     Route: 065
  5. FUROSEMIDE [Concomitant]
     Route: 065
  6. OXYBUTYNIN [Concomitant]
     Route: 065
  7. PRAVASTATIN SODIUM [Concomitant]
     Route: 065
  8. RAMIPRIL [Concomitant]
     Route: 065

REACTIONS (2)
  - BRADYCARDIA [None]
  - DYSPNOEA [None]
